FAERS Safety Report 9363784 (Version 2)
Quarter: 2013Q4

REPORT INFORMATION
  Report Type: Spontaneous
  Country: US (occurrence: US)
  Receive Date: 20130624
  Receipt Date: 20131125
  Transmission Date: 20140711
  Serious: Yes (Hospitalization)
  Sender: FDA-Public Use
  Company Number: US-UCBSA-089292

PATIENT
  Sex: Male
  Weight: 117.9 kg

DRUGS (8)
  1. LEVETIRACETAM [Suspect]
     Indication: CONVULSION
     Route: 048
     Dates: start: 200504
  2. LEVETIRACETAM [Suspect]
     Indication: CONVULSION
     Dosage: DOSE INCREASED
     Route: 048
     Dates: end: 201208
  3. PHENYTOIN [Concomitant]
     Indication: CONVULSION
  4. ZONISAMIDE [Concomitant]
  5. DILANTIN [Concomitant]
     Indication: CONVULSION
     Route: 048
     Dates: start: 2009
  6. PLAQUENIL [Concomitant]
     Indication: SYSTEMIC LUPUS ERYTHEMATOSUS
  7. LOVENOX [Concomitant]
     Indication: DEEP VEIN THROMBOSIS
  8. ZONEGRAN [Concomitant]
     Indication: CONVULSION
     Route: 048
     Dates: start: 2009

REACTIONS (4)
  - Aggression [Not Recovered/Not Resolved]
  - Abnormal behaviour [Not Recovered/Not Resolved]
  - Unresponsive to stimuli [Not Recovered/Not Resolved]
  - Amnesia [Not Recovered/Not Resolved]
